FAERS Safety Report 4369440-3 (Version None)
Quarter: 2004Q2

REPORT INFORMATION
  Report Type: 
  Country: None (occurrence: None)
  Receive Date: 20040527
  Receipt Date: 20040518
  Transmission Date: 20050107
  Serious: No
  Sender: FDA-Public Use
  Company Number: 2004UW10387

PATIENT
  Age: 46 Year
  Sex: Female

DRUGS (7)
  1. SEROQUEL [Suspect]
     Indication: DEPRESSION
     Dosage: 25 MG DAILY PO
     Route: 048
     Dates: start: 20040514, end: 20040516
  2. ZYPREXA [Concomitant]
  3. ZOLOFT [Concomitant]
  4. SOMA [Concomitant]
  5. ULTRAM [Concomitant]
  6. HYDROCODONE [Concomitant]
  7. KLONOPIN [Concomitant]

REACTIONS (1)
  - SUICIDAL IDEATION [None]
